FAERS Safety Report 7519321-9 (Version None)
Quarter: 2011Q2

REPORT INFORMATION
  Report Type: 
  Country: None (occurrence: None)
  Receive Date: 20110602
  Receipt Date: 20110526
  Transmission Date: 20111010
  Serious: Yes (Hospitalization, Other)
  Sender: FDA-Public Use
  Company Number: US-US-EMD SERONO, INC.-7010037

PATIENT
  Sex: Female

DRUGS (4)
  1. REBIF [Suspect]
     Indication: MULTIPLE SCLEROSIS
     Route: 058
     Dates: start: 20100527, end: 20110401
  2. REBIF [Suspect]
     Route: 058
     Dates: start: 20100101
  3. REBIF [Suspect]
     Dates: start: 20100101, end: 20100101
  4. REBIF [Suspect]
     Dates: start: 20100101, end: 20100101

REACTIONS (6)
  - GASTROOESOPHAGEAL REFLUX DISEASE [None]
  - OPTIC NEURITIS [None]
  - MULTIPLE SCLEROSIS RELAPSE [None]
  - IIIRD NERVE PARALYSIS [None]
  - ORAL FUNGAL INFECTION [None]
  - INFLUENZA LIKE ILLNESS [None]
